FAERS Safety Report 13715325 (Version 1)
Quarter: 2017Q3

REPORT INFORMATION
  Report Type: Spontaneous
  Country: AU (occurrence: AU)
  Receive Date: 20170704
  Receipt Date: 20170704
  Transmission Date: 20171127
  Serious: Yes (Other)
  Sender: FDA-Public Use
  Company Number: AU-TEVA-781080ISR

PATIENT
  Age: 62 Year
  Sex: Female

DRUGS (7)
  1. NILOTINIB [Suspect]
     Active Substance: NILOTINIB
     Route: 065
     Dates: start: 201210
  2. IMATINIB [Suspect]
     Active Substance: IMATINIB
     Indication: CHRONIC MYELOID LEUKAEMIA
     Dosage: IMATINIB 400MG
     Route: 065
     Dates: start: 20130407, end: 20130919
  3. NILOTINIB [Suspect]
     Active Substance: NILOTINIB
     Dosage: 200 MILLIGRAM DAILY;
     Route: 065
     Dates: start: 20130923
  4. NILOTINIB [Suspect]
     Active Substance: NILOTINIB
     Indication: CHRONIC MYELOID LEUKAEMIA
     Dosage: 600 MILLIGRAM DAILY;
     Route: 065
     Dates: end: 20120802
  5. NILOTINIB [Suspect]
     Active Substance: NILOTINIB
     Dosage: 600  DAILY;
     Route: 065
     Dates: start: 201406
  6. DASATINIB [Suspect]
     Active Substance: DASATINIB
     Dosage: 100 MILLIGRAM DAILY;
     Route: 065
     Dates: start: 20170120
  7. DASATINIB [Suspect]
     Active Substance: DASATINIB
     Indication: CHRONIC MYELOID LEUKAEMIA
     Dosage: 100 MILLIGRAM DAILY;
     Route: 065
     Dates: start: 201211, end: 201304

REACTIONS (3)
  - Polymerase chain reaction positive [Unknown]
  - Bone marrow failure [Unknown]
  - Drug ineffective [Unknown]

NARRATIVE: CASE EVENT DATE: 20150417
